FAERS Safety Report 7593456-7 (Version None)
Quarter: 2011Q3

REPORT INFORMATION
  Report Type: 
  Country: None (occurrence: None)
  Receive Date: 20110706
  Receipt Date: 20110623
  Transmission Date: 20111222
  Serious: No
  Sender: FDA-Public Use
  Company Number: US-BAYER-2011-055372

PATIENT
  Sex: Female

DRUGS (3)
  1. BEYAZ [Suspect]
     Indication: MENSTRUATION IRREGULAR
  2. BENADRYL [Concomitant]
     Indication: RASH
  3. ERYTHROMYCIN [Concomitant]
     Indication: PHARYNGITIS STREPTOCOCCAL

REACTIONS (1)
  - NO ADVERSE EVENT [None]
